FAERS Safety Report 20898955 (Version 7)
Quarter: 2023Q2

REPORT INFORMATION
  Report Type: Spontaneous
  Country: US (occurrence: US)
  Receive Date: 20220601
  Receipt Date: 20230525
  Transmission Date: 20230722
  Serious: Yes (Hospitalization)
  Sender: FDA-Public Use
  Company Number: ENDG22-03150

PATIENT
  Age: 3 Decade
  Sex: Female

DRUGS (3)
  1. PHENOBARBITAL [Suspect]
     Active Substance: PHENOBARBITAL
     Indication: Seizure
     Dosage: UNK UNKNOWN, UNKNOWN (10 OR 20 A MONTH)
     Route: 048
  2. PHENOBARBITAL [Suspect]
     Active Substance: PHENOBARBITAL
     Dosage: 97.2 MG, BID
     Route: 048
  3. Anti-seizure medications [Concomitant]
     Indication: Seizure
     Dosage: UNK UNKNOWN, UNKNOWN
     Route: 065

REACTIONS (7)
  - Respiratory failure [Recovered/Resolved]
  - Seizure [Recovered/Resolved]
  - Coma [Recovered/Resolved]
  - Pneumothorax [Recovered/Resolved]
  - Pneumonia [Recovered/Resolved]
  - Heart rate decreased [Recovered/Resolved]
  - Product dose omission issue [Recovered/Resolved]

NARRATIVE: CASE EVENT DATE: 20211101
